FAERS Safety Report 11233599 (Version 1)
Quarter: 2015Q3

REPORT INFORMATION
  Report Type: Report from Study
  Country: US (occurrence: US)
  Receive Date: 20150702
  Receipt Date: 20150702
  Transmission Date: 20151125
  Serious: Yes (Other)
  Sender: FDA-Public Use
  Company Number: PHEH2015US007185

PATIENT
  Age: 60 Year
  Sex: Female
  Weight: 63.49 kg

DRUGS (4)
  1. LEVOTHYROXINE. [Concomitant]
     Active Substance: LEVOTHYROXINE
     Indication: HYPOTHYROIDISM
     Dosage: 50 UG, QD
     Route: 048
  2. SIMVASTATIN. [Concomitant]
     Active Substance: SIMVASTATIN
     Indication: BLOOD CHOLESTEROL INCREASED
     Dosage: 20 MG, QD
     Route: 048
  3. GILENYA [Suspect]
     Active Substance: FINGOLIMOD HYDROCHLORIDE
     Indication: MULTIPLE SCLEROSIS
     Dosage: 0.5 MG, QD
     Route: 048
     Dates: start: 20150211
  4. ERGOCALCIFEROL. [Concomitant]
     Active Substance: ERGOCALCIFEROL
     Indication: VITAMIN D DEFICIENCY
     Dosage: 50000 OT, QW
     Route: 048
     Dates: start: 20150108

REACTIONS (5)
  - Malaise [Recovering/Resolving]
  - Nasopharyngitis [Recovering/Resolving]
  - Upper respiratory tract infection [Recovered/Resolved]
  - Bronchitis [Recovering/Resolving]
  - Chest discomfort [Unknown]

NARRATIVE: CASE EVENT DATE: 20150422
